FAERS Safety Report 4463167-5 (Version None)
Quarter: 2004Q3

REPORT INFORMATION
  Report Type: 
  Country: None (occurrence: None)
  Receive Date: 20040928
  Receipt Date: 20040913
  Transmission Date: 20050211
  Serious: No
  Sender: FDA-Public Use
  Company Number: 2004AC00310

PATIENT
  Age: 57 Year
  Sex: Male

DRUGS (9)
  1. PROPOFOL [Suspect]
     Indication: ANAESTHESIA
  2. GELOFUSINE [Suspect]
     Dosage: 500 ML BAG
  3. OMEPRAZOLE [Concomitant]
  4. FLIXOTIDE [Concomitant]
  5. ALBUTEROL [Concomitant]
  6. MIDAZOLAM HCL [Concomitant]
  7. FENTANYL [Concomitant]
  8. ATRACURIUM [Concomitant]
  9. METARAMINOL [Concomitant]

REACTIONS (7)
  - ANAPHYLACTIC REACTION [None]
  - DRUG INEFFECTIVE [None]
  - ERYTHEMA [None]
  - FIBRINOLYSIS [None]
  - HYPOTENSION [None]
  - SKIN TEST POSITIVE [None]
  - TACHYCARDIA [None]
